FAERS Safety Report 25351448 (Version 2)
Quarter: 2025Q2

REPORT INFORMATION
  Report Type: Spontaneous
  Country: JP (occurrence: JP)
  Receive Date: 20250523
  Receipt Date: 20250626
  Transmission Date: 20250716
  Serious: Yes (Death, Life-Threatening, Hospitalization)
  Sender: AMGEN
  Company Number: JP-AMGEN-JPNSP2025098130

PATIENT
  Age: 65 Year
  Sex: Male

DRUGS (8)
  1. IMDELLTRA [Suspect]
     Active Substance: TARLATAMAB-DLLE
     Indication: Small cell lung cancer
     Route: 040
     Dates: start: 20250516
  2. VONOPRAZAN FUMARATE [Concomitant]
     Active Substance: VONOPRAZAN FUMARATE
  3. SAMSCA [Concomitant]
     Active Substance: TOLVAPTAN
  4. AMINO ACIDS, SOURCE UNSPECIFIED [Concomitant]
     Active Substance: AMINO ACIDS, SOURCE UNSPECIFIED
     Indication: Hepatic cirrhosis
  5. SYMPROIC [Concomitant]
     Active Substance: NALDEMEDINE TOSYLATE
  6. DAYVIGO [Concomitant]
     Active Substance: LEMBOREXANT
  7. MORPHINE HYDROCHLORIDE [Concomitant]
     Active Substance: MORPHINE HYDROCHLORIDE
  8. MS CONTIN [Concomitant]
     Active Substance: MORPHINE SULFATE

REACTIONS (6)
  - Gastric varices haemorrhage [Fatal]
  - Hepatic cirrhosis [Fatal]
  - Interstitial lung disease [Not Recovered/Not Resolved]
  - Cytokine release syndrome [Recovered/Resolved]
  - Small cell lung cancer [Fatal]
  - Blood pressure systolic increased [Recovering/Resolving]

NARRATIVE: CASE EVENT DATE: 20250517
